FAERS Safety Report 13109986 (Version 1)
Quarter: 2017Q1

REPORT INFORMATION
  Report Type: Spontaneous
  Country: US (occurrence: US)
  Receive Date: 20170112
  Receipt Date: 20170112
  Transmission Date: 20170428
  Serious: Yes (Hospitalization)
  Sender: FDA-Public Use
  Company Number: US-ROCHE-1209806

PATIENT
  Age: 8 Day
  Sex: Male
  Weight: 2.9 kg

DRUGS (6)
  1. ALTEPLASE [Suspect]
     Active Substance: ALTEPLASE
     Dosage: 1 MG IN 10 ML NORMAL SALINE
     Route: 050
  2. ALTEPLASE [Suspect]
     Active Substance: ALTEPLASE
     Dosage: 0.17 MG/KG PER HOUR FOR 3 HOURS
     Route: 042
  3. ALTEPLASE [Suspect]
     Active Substance: ALTEPLASE
     Dosage: 0.3 MG/KG PER HOUR
     Route: 042
  4. ALTEPLASE [Suspect]
     Active Substance: ALTEPLASE
     Indication: URINARY BLADDER HAEMORRHAGE
     Route: 040
  5. ALTEPLASE [Suspect]
     Active Substance: ALTEPLASE
     Dosage: 1 MG IN 15 ML NORMAL SALINE
     Route: 050
  6. HEPARIN [Concomitant]
     Active Substance: HEPARIN SODIUM
     Route: 065

REACTIONS (1)
  - Vessel puncture site haemorrhage [Recovered/Resolved]
